FAERS Safety Report 24166314 (Version 1)
Quarter: 2024Q3

REPORT INFORMATION
  Report Type: Spontaneous
  Country: US (occurrence: US)
  Receive Date: 20240802
  Receipt Date: 20240802
  Transmission Date: 20241017
  Serious: Yes (Life-Threatening, Hospitalization)
  Sender: MACLEODS
  Company Number: US-MACLEODS PHARMA-MAC2024048553

PATIENT

DRUGS (1)
  1. METFORMIN HYDROCHLORIDE [Suspect]
     Active Substance: METFORMIN HYDROCHLORIDE
     Indication: Type 2 diabetes mellitus
     Dosage: FOR THE PAST 8 YEARS
     Route: 065

REACTIONS (5)
  - Acute kidney injury [Recovered/Resolved]
  - Condition aggravated [Recovered/Resolved]
  - Hypovolaemia [Recovered/Resolved]
  - Lactic acidosis [Recovered/Resolved]
  - Metabolic acidosis [Recovered/Resolved]
